FAERS Safety Report 20393763 (Version 2)
Quarter: 2022Q1

REPORT INFORMATION
  Report Type: Other
  Country: CA (occurrence: CA)
  Receive Date: 20220128
  Receipt Date: 20220301
  Transmission Date: 20220424
  Serious: Yes (Other)
  Sender: FDA-Public Use
  Company Number: CA-CELLTRION INC.-2022CA000627

PATIENT

DRUGS (19)
  1. RITUXIMAB [Suspect]
     Active Substance: RITUXIMAB
     Indication: Necrotising myositis
     Dosage: 1000 MILLIGRAM
     Route: 041
  2. ACETAMINOPHEN [Concomitant]
     Active Substance: ACETAMINOPHEN
     Indication: Premedication
     Dosage: 650 MILLIGRAM
     Route: 048
  3. AZATHIOPRINE [Concomitant]
     Active Substance: AZATHIOPRINE
     Dosage: 100 MILLIGRAM, 2 EVERY 1 DAYS
     Route: 048
  4. CALCIUM CARBONATE\ERGOCALCIFEROL [Concomitant]
     Active Substance: CALCIUM CARBONATE\ERGOCALCIFEROL
     Dosage: 500 MILLIGRAM, 1 EVERY 1 DAYS
     Route: 048
  5. DESONIDE [Concomitant]
     Active Substance: DESONIDE
     Dosage: 0.05 PERCENT, 2 EVERY 1 DAYS
     Route: 061
  6. DIPHENHYDRAMINE [Concomitant]
     Active Substance: DIPHENHYDRAMINE
     Indication: Premedication
     Dosage: 50 MILLIGRAM
     Route: 048
  7. HYDROCORTISONE [Concomitant]
     Active Substance: HYDROCORTISONE
     Dosage: 2 EVERY 1 DAYS
     Route: 061
  8. HYDROCORTISONE [Concomitant]
     Active Substance: HYDROCORTISONE
     Dosage: 5 MILLIGRAM, 2 EVERY 1 DAYS
     Route: 048
  9. LEUCOVORIN [Concomitant]
     Active Substance: LEUCOVORIN
     Dosage: 5 MILLIGRAM, 2 EVERY 1 WEEKS
     Route: 048
  10. METHOTREXATE [Concomitant]
     Active Substance: METHOTREXATE
     Dosage: 25 MILLIGRAM, 1 EVERT 1 DAYS
     Route: 048
  11. METHYLPREDNISOLONE [Concomitant]
     Active Substance: METHYLPREDNISOLONE
     Indication: Premedication
     Dosage: 100 MILLIGRAM
     Route: 042
  12. PANTOPRAZOLE SODIUM [Concomitant]
     Active Substance: PANTOPRAZOLE SODIUM
     Indication: Ill-defined disorder
     Dosage: 40 MILLIGRAM, 2 EVERY 1 DAYS
     Route: 048
  13. PREDNISONE [Concomitant]
     Active Substance: PREDNISONE
     Dosage: 80 MILLIGRAM, 1 EVERY 1 DAYS
     Route: 048
  14. RISEDRONATE SODIUM [Concomitant]
     Active Substance: RISEDRONATE SODIUM
     Indication: Osteoporosis
     Dosage: 35 MG, 1 EVERY 1 WEEKS
     Route: 048
  15. SULFAMETHOXAZOLE [Concomitant]
     Active Substance: SULFAMETHOXAZOLE
     Dosage: 160 MILLIGRAM, 3 EVERY 1 DAYS
     Route: 048
  16. SYNTHROID [Concomitant]
     Active Substance: LEVOTHYROXINE SODIUM
     Dosage: 137 MILLIGRAM, 1 EVERY 1 DAYS
     Route: 048
  17. TOPICORT [Concomitant]
     Active Substance: DESOXIMETASONE
     Dosage: 0.25 PERCENT, 2 EVERY 1 DAYS
     Route: 061
  18. TYLENOL [Concomitant]
     Active Substance: ACETAMINOPHEN
     Dosage: 500 MILLIGRAM, 1 EVERY 4 HOURS
     Route: 048
  19. ZOPICLONE [Concomitant]
     Active Substance: ZOPICLONE
     Indication: Insomnia
     Dosage: 3.75 MILLIGRAM, 1 EVERY 1 DAYS
     Route: 065

REACTIONS (3)
  - Umbilical hernia [Recovered/Resolved]
  - Wound secretion [Recovered/Resolved]
  - Off label use [Unknown]
